FAERS Safety Report 7310481-1 (Version None)
Quarter: 2011Q1

REPORT INFORMATION
  Report Type: 
  Country: None (occurrence: None)
  Receive Date: 20110224
  Receipt Date: 20101006
  Transmission Date: 20110831
  Serious: No
  Sender: FDA-Public Use
  Company Number: US-BRISTOL-MYERS SQUIBB COMPANY-15320864

PATIENT

DRUGS (1)
  1. GLUCOPHAGE [Suspect]
     Indication: TYPE 2 DIABETES MELLITUS
     Dosage: THERAPY HAVE BEEN TAKING FOR THE PAST 2 YEARS

REACTIONS (2)
  - WEIGHT DECREASED [None]
  - HEART RATE DECREASED [None]
